FAERS Safety Report 9510322 (Version 1)
Quarter: 2013Q3

REPORT INFORMATION
  Report Type: Spontaneous
  Country: US (occurrence: US)
  Receive Date: 20130909
  Receipt Date: 20130909
  Transmission Date: 20140515
  Serious: No
  Sender: FDA-Public Use
  Company Number: US-BRISTOL-MYERS SQUIBB COMPANY-17458084

PATIENT
  Age: 64 Year
  Sex: Female

DRUGS (2)
  1. ABILIFY TABS 15 MG [Suspect]
     Indication: BIPOLAR DISORDER
     Dosage: DECREASED TO 10MG AND DISCONTINUED
  2. ABILIFY TABS 15 MG [Suspect]
     Indication: DEPRESSION
     Dosage: DECREASED TO 10MG AND DISCONTINUED

REACTIONS (2)
  - Dyskinesia [Unknown]
  - Gait disturbance [Unknown]
